FAERS Safety Report 22256225 (Version 6)
Quarter: 2023Q4

REPORT INFORMATION
  Report Type: Report from Study
  Country: CA (occurrence: CA)
  Receive Date: 20230426
  Receipt Date: 20231108
  Transmission Date: 20240110
  Serious: Yes (Death, Hospitalization, Other)
  Sender: FDA-Public Use
  Company Number: CA-HLS-202300896

PATIENT
  Age: 68 Year
  Sex: Male
  Weight: 89 kg

DRUGS (15)
  1. CLOZARIL [Suspect]
     Active Substance: CLOZAPINE
     Indication: Product used for unknown indication
     Dosage: 550MG/DAY SINCE AUGUST 2010; CURRENTLY 450MG/DAY (150 MG AM + 300 MG HS) SINCE 25-JUN-2021. PATIENT
     Route: 048
     Dates: start: 20061002
  2. FLOMAX [Concomitant]
     Active Substance: TAMSULOSIN HYDROCHLORIDE
     Indication: Urinary retention
     Route: 065
  3. LEVAQUIN [Concomitant]
     Active Substance: LEVOFLOXACIN
     Indication: Pneumonia
     Dosage: 750 MG ONCE A DAY STARTED X5 DAYS THEN MODIFIED TO 500 MG PO ONCE A DAY X10 DAYS
     Route: 065
     Dates: start: 20180414
  4. CIPROFLOXACIN [Concomitant]
     Active Substance: CIPROFLOXACIN
     Indication: Idiopathic interstitial pneumonia
     Dosage: 500MG PO BID
     Route: 048
     Dates: start: 20180720, end: 20180723
  5. VALPROIC ACID [Suspect]
     Active Substance: VALPROIC ACID
     Indication: Product used for unknown indication
     Dosage: INCREASED TO 1000MG PO BID OCTOBER 2020; DECREASED TO 500MG PO TID FEBRUARY 2021
     Route: 048
  6. VIMPAT [Suspect]
     Active Substance: LACOSAMIDE
     Indication: Seizure
     Dosage: 50 MG PO BID; INCREASE TO 75 MG PO BID ON 30-NOV-2021; INCREASED TO 100 MG PO BID ON 08-FEB-2023 THE
     Route: 065
  7. JARDIANCE [Suspect]
     Active Substance: EMPAGLIFLOZIN
     Indication: Hyperglycaemia
     Dosage: START DATE 25-JUN-2021
     Route: 065
     Dates: end: 202301
  8. PROPRANOLOL [Concomitant]
     Active Substance: PROPRANOLOL HYDROCHLORIDE
     Indication: Product used for unknown indication
     Dosage: 20MG/DAY
     Route: 065
  9. QUETIAPINE [Concomitant]
     Active Substance: QUETIAPINE
     Indication: Product used for unknown indication
     Dosage: QUETIAPINE XR 250 MG DAILY QUETIAPINE 25 MG QID PRN (THEREFORE AD 350 MG/DAY)
     Route: 065
  10. GLYCERIN [Concomitant]
     Active Substance: GLYCERIN
     Indication: Product used for unknown indication
     Dosage: PRN SUPPOSITORIES
     Route: 065
  11. BISACODYL [Concomitant]
     Active Substance: BISACODYL
     Indication: Product used for unknown indication
     Dosage: PRN SUPPOSITORIES
     Route: 065
  12. Relaxa [Concomitant]
     Indication: Product used for unknown indication
     Route: 065
  13. SENNOSIDES [Concomitant]
     Active Substance: SENNOSIDES
     Indication: Product used for unknown indication
     Route: 065
  14. SERTRALINE [Concomitant]
     Active Substance: SERTRALINE HYDROCHLORIDE
     Indication: Product used for unknown indication
     Route: 065
  15. ASPIRIN [Concomitant]
     Active Substance: ASPIRIN
     Indication: Product used for unknown indication
     Dosage: 80MG PO DAILY
     Route: 048

REACTIONS (39)
  - Pyelonephritis acute [Unknown]
  - Pneumonia aspiration [Unknown]
  - Pneumonia aspiration [Unknown]
  - Balance disorder [Unknown]
  - Toxicity to various agents [Unknown]
  - Constipation [Unknown]
  - Seizure [Not Recovered/Not Resolved]
  - Death [Fatal]
  - Psychiatric decompensation [Unknown]
  - General physical health deterioration [Unknown]
  - Diabetes mellitus [Unknown]
  - Therapy interrupted [Unknown]
  - Erectile dysfunction [Unknown]
  - Extrapyramidal disorder [Unknown]
  - Faecaloma [Unknown]
  - Urinary tract infection [Unknown]
  - Palpitations [Unknown]
  - Idiopathic interstitial pneumonia [Unknown]
  - Hyperglycaemia [Unknown]
  - Influenza [Unknown]
  - Pneumonia [Unknown]
  - Pneumonia [Unknown]
  - Pneumonia [Unknown]
  - Multiple drug therapy [Unknown]
  - General physical health deterioration [Unknown]
  - Asthenia [Unknown]
  - Seizure [Unknown]
  - Depressed level of consciousness [Unknown]
  - Adverse drug reaction [Unknown]
  - Hyponatraemia [Unknown]
  - Somnolence [Unknown]
  - Cerebrovascular accident [Unknown]
  - Tachycardia [Unknown]
  - Tremor [Not Recovered/Not Resolved]
  - Blood triglycerides increased [Unknown]
  - Cystitis [Unknown]
  - Urinary retention [Unknown]
  - Urinary retention [Recovered/Resolved]
  - Weight decreased [Unknown]

NARRATIVE: CASE EVENT DATE: 20180228
